FAERS Safety Report 6240055-5 (Version None)
Quarter: 2009Q2

REPORT INFORMATION
  Report Type: 
  Country: None (occurrence: None)
  Receive Date: 20090623
  Receipt Date: 20090617
  Transmission Date: 20091009
  Serious: Yes (Death)
  Sender: FDA-Public Use
  Company Number: US-ROCHE-639240

PATIENT
  Sex: Female
  Weight: 57.6 kg

DRUGS (1)
  1. CAPECITABINE [Suspect]
     Indication: BREAST CANCER
     Dosage: DOSE FORM: PILLS
     Route: 048
     Dates: start: 20090214

REACTIONS (1)
  - DEATH [None]
